FAERS Safety Report 9265672 (Version 1)
Quarter: 2013Q2

REPORT INFORMATION
  Report Type: Spontaneous
  Country: NO (occurrence: NO)
  Receive Date: 20130501
  Receipt Date: 20130501
  Transmission Date: 20140414
  Serious: Yes (Life-Threatening, Hospitalization, Other)
  Sender: FDA-Public Use
  Company Number: NO-MERCK-1304NOR014642

PATIENT
  Age: 58 Year
  Sex: Male

DRUGS (9)
  1. JANUVIA [Suspect]
     Indication: DIABETES MELLITUS
     Dosage: 100 MICROGRAM, BID
     Dates: start: 20100617, end: 20120210
  2. ATACAND PLUS [Concomitant]
     Indication: HYPERTENSION
     Dosage: 1 DF, QD
  3. GLIMEPIRIDE [Concomitant]
     Indication: DIABETES MELLITUS
  4. ADALAT OROS [Concomitant]
     Indication: HYPERTENSION
  5. BYETTA [Suspect]
     Indication: DIABETES MELLITUS
     Dosage: 10 MICROGRAM, BID
     Dates: start: 20100617, end: 20120210
  6. VICTOZA [Suspect]
     Indication: DIABETES MELLITUS
     Dates: start: 20120210
  7. SIMVASTATIN [Concomitant]
     Indication: HYPERCHOLESTEROLAEMIA
  8. ALBYL-E [Concomitant]
     Indication: PROPHYLAXIS
  9. METOPROLOL [Concomitant]
     Indication: HYPERTENSION

REACTIONS (1)
  - Hepatic failure [Not Recovered/Not Resolved]
